FAERS Safety Report 7774081-1 (Version None)
Quarter: 2011Q3

REPORT INFORMATION
  Report Type: 
  Country: None (occurrence: None)
  Receive Date: 20110923
  Receipt Date: 20110919
  Transmission Date: 20111222
  Serious: No
  Sender: FDA-Public Use
  Company Number: US-PFIZER INC-2011222560

PATIENT
  Sex: Female

DRUGS (2)
  1. PREMARIN [Suspect]
     Dosage: 0.3 MG, UNK
  2. PREMARIN [Suspect]
     Dosage: 0.45 MG, UNK

REACTIONS (1)
  - BREAST PAIN [None]
